FAERS Safety Report 9201718 (Version 3)
Quarter: 2013Q3

REPORT INFORMATION
  Report Type: Report from Study
  Country: JP (occurrence: JP)
  Receive Date: 20130401
  Receipt Date: 20130927
  Transmission Date: 20140515
  Serious: Yes (Death)
  Sender: FDA-Public Use
  Company Number: JP-PFIZER INC-2013099444

PATIENT
  Age: 59 Year
  Sex: Female
  Weight: 68.8 kg

DRUGS (13)
  1. XALKORI [Suspect]
     Indication: NON-SMALL CELL LUNG CANCER
     Dosage: 250 MG, 2X/DAY
     Route: 048
     Dates: start: 20121108, end: 20121127
  2. XALKORI [Suspect]
     Dosage: 200 MG, 2X/DAY
     Route: 048
     Dates: start: 20121127, end: 20121204
  3. XALKORI [Suspect]
     Dosage: 250 MG, 2X/DAY
     Route: 048
     Dates: start: 20121204, end: 20121228
  4. XALKORI [Suspect]
     Dosage: 250 MG, 2X/DAY
     Route: 048
     Dates: start: 20130111, end: 20130115
  5. XALKORI [Suspect]
     Dosage: 250 MG, 2X/DAY
     Route: 048
     Dates: start: 20130127
  6. MAGMITT [Concomitant]
     Dosage: 500 MG, 3X/DAY
     Route: 048
     Dates: start: 20130108
  7. NOVAMIN [Concomitant]
     Dosage: 5 MG, 3X/DAY
     Route: 048
     Dates: start: 20130108
  8. OPSO [Concomitant]
     Dosage: 5 MG, AS NEEDED
     Route: 048
     Dates: start: 20130117
  9. NAIXAN [Concomitant]
     Dosage: 100 MG, 3X/DAY
     Route: 048
     Dates: start: 20130117
  10. HALCION [Concomitant]
     Dosage: 0.25 MG, 1X/DAY
     Route: 048
     Dates: start: 20130118
  11. DECADRON [Concomitant]
     Dosage: 1 MG, 2X/DAY
     Route: 048
     Dates: start: 20130122
  12. PACIF [Concomitant]
     Dosage: 60 MG, 1X/DAY
     Route: 048
     Dates: start: 20130131
  13. ZOFRAN [Concomitant]
     Dosage: 4 MG, AS NEEDED
     Route: 048
     Dates: start: 20130228, end: 20130302

REACTIONS (1)
  - Cardio-respiratory arrest [Fatal]
